FAERS Safety Report 6540842-X (Version None)
Quarter: 2010Q1

REPORT INFORMATION
  Report Type: 
  Country: None (occurrence: None)
  Receive Date: 20100118
  Receipt Date: 20100107
  Transmission Date: 20100710
  Serious: Yes (Other)
  Sender: FDA-Public Use
  Company Number: PHHY2010FR01066

PATIENT
  Age: 44 Year
  Sex: Female

DRUGS (4)
  1. TEGRETOL [Suspect]
     Indication: EPILEPSY
     Dosage: 500 MG, DAILY
  2. ESTRADERM [Concomitant]
     Indication: ACNE
     Dosage: 25 ?G/24H FOR 25 YEARS
  3. ANDROCUR [Concomitant]
     Indication: ACNE
     Dosage: FOR 25 YEARS
  4. PARACETAMOL [Concomitant]

REACTIONS (3)
  - ANGIOEDEMA [None]
  - PYREXIA [None]
  - SUFFOCATION FEELING [None]
